FAERS Safety Report 12542981 (Version 15)
Quarter: 2017Q3

REPORT INFORMATION
  Report Type: Report from Study
  Country: CA (occurrence: CA)
  Receive Date: 20160710
  Receipt Date: 20170801
  Transmission Date: 20171127
  Serious: Yes (Hospitalization, Other)
  Sender: FDA-Public Use
  Company Number: PHHY2012CA062297

PATIENT
  Age: 71 Year
  Sex: Female

DRUGS (8)
  1. SANDOSTATIN LAR DEPOT [Suspect]
     Active Substance: OCTREOTIDE ACETATE
     Dosage: 40 MG (EVERY 3 WEEKS)
     Route: 030
  2. SANDOSTATIN LAR DEPOT [Suspect]
     Active Substance: OCTREOTIDE ACETATE
     Indication: NEUROENDOCRINE TUMOUR
     Dosage: 30 MG, (EVERY 4 WEEKS)
     Route: 030
     Dates: start: 20120222
  3. SANDOSTATIN [Suspect]
     Active Substance: OCTREOTIDE ACETATE
     Indication: NEUROENDOCRINE TUMOUR
     Dosage: UNK UNK, TID
     Route: 058
  4. SANDOSTATIN LAR DEPOT [Suspect]
     Active Substance: OCTREOTIDE ACETATE
     Dosage: 60 MG, (EVERY 3 WEEKS)
     Route: 030
     Dates: start: 20161117
  5. SANDOSTATIN LAR DEPOT [Suspect]
     Active Substance: OCTREOTIDE ACETATE
     Dosage: 90 MG, (EVERY 3 WEEKS)
     Route: 030
     Dates: start: 20170413
  6. DILAUDID [Concomitant]
     Active Substance: HYDROMORPHONE HYDROCHLORIDE
     Indication: PRODUCT USED FOR UNKNOWN INDICATION
     Dosage: UNK (IN BETWEEN THE TWO DOSES OF MS CONTIN)
     Route: 065
  7. PRAVASTATIN. [Concomitant]
     Active Substance: PRAVASTATIN
     Indication: PRODUCT USED FOR UNKNOWN INDICATION
     Route: 065
  8. HYDROCHOROTHIAZIDE [Concomitant]
     Active Substance: HYDROCHLOROTHIAZIDE
     Indication: PRODUCT USED FOR UNKNOWN INDICATION
     Route: 065

REACTIONS (30)
  - Malignant neoplasm progression [Unknown]
  - Pain in extremity [Unknown]
  - Abdominal pain [Unknown]
  - Underdose [Unknown]
  - Blood pressure diastolic decreased [Unknown]
  - Movement disorder [Unknown]
  - Body temperature decreased [Unknown]
  - Peripheral swelling [Unknown]
  - Diarrhoea [Unknown]
  - Pleural effusion [Unknown]
  - Joint injury [Unknown]
  - Needle issue [Unknown]
  - Hypertension [Unknown]
  - Blood pressure systolic increased [Unknown]
  - Malaise [Unknown]
  - Underweight [Unknown]
  - Memory impairment [Unknown]
  - Musculoskeletal pain [Unknown]
  - Back pain [Unknown]
  - Inappropriate schedule of drug administration [Unknown]
  - Fatigue [Unknown]
  - Weight decreased [Unknown]
  - Oedema [Unknown]
  - Vomiting [Unknown]
  - Pneumonia [Unknown]
  - Pain [Unknown]
  - Oedema peripheral [Unknown]
  - Muscle atrophy [Unknown]
  - Decreased appetite [Unknown]
  - Nausea [Unknown]

NARRATIVE: CASE EVENT DATE: 20160603
